FAERS Safety Report 7577281-9 (Version None)
Quarter: 2011Q2

REPORT INFORMATION
  Report Type: 
  Country: None (occurrence: None)
  Receive Date: 20110628
  Receipt Date: 20110617
  Transmission Date: 20111010
  Serious: Yes (Death, Other)
  Sender: FDA-Public Use
  Company Number: KR-BAYER-2011-052100

PATIENT
  Age: 44 Year
  Sex: Male

DRUGS (3)
  1. ULTRAVIST 150 [Suspect]
     Indication: HEPATIC CIRRHOSIS
  2. ULTRAVIST 150 [Suspect]
     Indication: COMPUTERISED TOMOGRAM ABDOMEN
     Dosage: 130 ML, ONCE AT 3.5CC/SEC
     Dates: start: 20110617, end: 20110617
  3. ULTRAVIST 150 [Suspect]
     Indication: HEPATIC NEOPLASM MALIGNANT

REACTIONS (4)
  - DEATH [None]
  - COUGH [None]
  - VOMITING [None]
  - CYANOSIS [None]
